FAERS Safety Report 4808144-7 (Version None)
Quarter: 2005Q4

REPORT INFORMATION
  Report Type: 
  Country: None (occurrence: None)
  Receive Date: 20051021
  Receipt Date: 20050204
  Transmission Date: 20060501
  Serious: No
  Sender: FDA-Public Use
  Company Number: USA050392396

PATIENT
  Sex: Female

DRUGS (2)
  1. ZYREXA-ORAL (OLANZAPINE) (OLANZAPINE) [Suspect]
     Dosage: 15 MG
     Dates: start: 20040201
  2. TRAZODONE HCL [Concomitant]

REACTIONS (1)
  - PLATELET COUNT INCREASED [None]
